FAERS Safety Report 25269933 (Version 1)
Quarter: 2025Q2

REPORT INFORMATION
  Report Type: Spontaneous
  Country: US (occurrence: US)
  Receive Date: 20250505
  Receipt Date: 20250505
  Transmission Date: 20250717
  Serious: Yes (Other)
  Sender: TORRENT PHARMA INC.
  Company Number: US-TORRENT-00014331

PATIENT

DRUGS (1)
  1. ITRACONAZOLE [Suspect]
     Active Substance: ITRACONAZOLE
     Indication: Product used for unknown indication
     Route: 065

REACTIONS (6)
  - Tinnitus [Unknown]
  - Hyperbilirubinaemia [Unknown]
  - Pruritus [Unknown]
  - Dehydration [Unknown]
  - Brain fog [Unknown]
  - Adverse drug reaction [Unknown]
